FAERS Safety Report 7865557-7 (Version None)
Quarter: 2011Q4

REPORT INFORMATION
  Report Type: 
  Country: None (occurrence: None)
  Receive Date: 20111028
  Receipt Date: 20110117
  Transmission Date: 20120403
  Serious: No
  Sender: FDA-Public Use
  Company Number: US-GLAXOSMITHKLINE-A0906500A

PATIENT
  Age: 84 Year
  Sex: Male

DRUGS (4)
  1. ZETIA [Concomitant]
  2. MICARDIS HCT [Concomitant]
  3. ADVAIR DISKUS 100/50 [Suspect]
     Indication: ASTHMA
     Dosage: 1PUFF TWICE PER DAY
     Route: 055
  4. TRICOR [Concomitant]

REACTIONS (2)
  - RASH PRURITIC [None]
  - ERYTHEMA [None]
